FAERS Safety Report 9340180 (Version 1)
Quarter: 2013Q2

REPORT INFORMATION
  Report Type: Spontaneous
  Country: None (occurrence: None)
  Receive Date: 20130605
  Receipt Date: 20130605
  Transmission Date: 20140414
  Serious: Yes (Hospitalization)
  Sender: FDA-Public Use
  Company Number: 2013050097

PATIENT
  Age: 81 Year
  Sex: Female
  Weight: 65 kg

DRUGS (6)
  1. TOREM (TORASEMIDE) [Suspect]
     Indication: CARDIAC FAILURE
     Route: 048
  2. LYRICA (PREGABALIN) [Suspect]
     Route: 048
     Dates: start: 20130108, end: 20130404
  3. LISITRIL COMP (LISINOPRIL, HYROCHLOROTHIAZIDE) [Concomitant]
  4. CARVEDILOL (CARVEDILOL) [Concomitant]
  5. DIGOXIN (DIGOXIN) [Concomitant]
  6. OEDEMEX (FUROSEMIDE) [Concomitant]

REACTIONS (1)
  - Cardiac failure [None]
